FAERS Safety Report 10673510 (Version 1)
Quarter: 2014Q4

REPORT INFORMATION
  Report Type: Spontaneous
  Country: US (occurrence: None)
  Receive Date: 20141222
  Receipt Date: 20141222
  Transmission Date: 20150529
  Serious: No
  Sender: FDA-Public Use
  Company Number: None

PATIENT
  Age: 56 Year
  Sex: Male

DRUGS (1)
  1. BBRAUN INTROCAN CATHETER BBRAUN [Suspect]
     Active Substance: DEVICE
     Indication: DRUG THERAPY
     Dates: start: 20141218, end: 20141218

REACTIONS (3)
  - Incorrect route of drug administration [None]
  - Device issue [None]
  - Device breakage [None]

NARRATIVE: CASE EVENT DATE: 20141218
